FAERS Safety Report 4400489-8 (Version None)
Quarter: 2004Q3

REPORT INFORMATION
  Report Type: 
  Country: None (occurrence: None)
  Receive Date: 20040714
  Receipt Date: 20040625
  Transmission Date: 20050211
  Serious: Yes (Other)
  Sender: FDA-Public Use
  Company Number: USA040671127

PATIENT
  Age: 76 Year
  Sex: Female

DRUGS (8)
  1. EVISTA [Suspect]
     Dates: start: 20030801
  2. PREVACID [Concomitant]
  3. FOLIC ACID [Concomitant]
  4. LORAZEPAM [Concomitant]
  5. ULTRACET [Concomitant]
  6. TRIMETHOBENZAMIDE [Concomitant]
  7. ATENOLOL [Concomitant]
  8. VIOXX [Concomitant]

REACTIONS (4)
  - CONDITION AGGRAVATED [None]
  - HIATUS HERNIA [None]
  - INTERVERTEBRAL DISC DISORDER [None]
  - IRRITABLE BOWEL SYNDROME [None]
